FAERS Safety Report 6571276-X (Version None)
Quarter: 2010Q1

REPORT INFORMATION
  Report Type: 
  Country: None (occurrence: None)
  Receive Date: 20100129
  Receipt Date: 20100121
  Transmission Date: 20100710
  Serious: Yes (Other)
  Sender: FDA-Public Use
  Company Number: 2010SP004328

PATIENT
  Age: 32 Year
  Sex: Female

DRUGS (2)
  1. PEG-INTRON [Suspect]
     Indication: HEPATITIS C
     Dosage: 80 MCG; QW; SC
     Route: 058
  2. REBETOL [Suspect]
     Indication: HEPATITIS C
     Dosage: 600 MG; QD; PO
     Route: 048

REACTIONS (1)
  - LEUKAEMIA [None]
